FAERS Safety Report 4781462-7 (Version None)
Quarter: 2005Q3

REPORT INFORMATION
  Report Type: 
  Country: None (occurrence: None)
  Receive Date: 20050914
  Receipt Date: 20050108
  Transmission Date: 20060218
  Serious: Yes (Death, Hospitalization)
  Sender: FDA-Public Use
  Company Number: 163-20785-05010168

PATIENT
  Age: 78 Year
  Sex: Male
  Weight: 63.4 kg

DRUGS (3)
  1. THALOMID [Suspect]
     Indication: MULTIPLE MYELOMA
     Dosage: 200 MG, DAILY FOR 28 DAYS FOR 4 CYCLES, ORAL
     Route: 048
     Dates: start: 20030328, end: 20030602
  2. DEXAMETHASONE [Suspect]
     Dosage: 40MG, DAILY ON DAYS 1-4, 9-12 AND 17-20, Q28 DAYS FOR 4 CYCLES, ORAL
     Route: 048
     Dates: start: 20030328, end: 20030601
  3. PAMIDRONATE DISODIUM [Suspect]
     Indication: MULTIPLE MYELOMA
     Dosage: 90MG, OVER 2-4HRS. ON DAY 1 AND WEEKS 4, 8, 12 AND 16, INTRAVENOUS
     Route: 042
     Dates: start: 20030328, end: 20030522

REACTIONS (9)
  - DEATH [None]
  - DEHYDRATION [None]
  - DYSPHAGIA [None]
  - HYPONATRAEMIA [None]
  - INFECTION [None]
  - ODYNOPHAGIA [None]
  - OESOPHAGITIS [None]
  - RESPIRATORY TRACT INFECTION [None]
  - SEPSIS [None]
